FAERS Safety Report 24831378 (Version 1)
Quarter: 2025Q1

REPORT INFORMATION
  Report Type: Spontaneous
  Country: US (occurrence: US)
  Receive Date: 20250110
  Receipt Date: 20250110
  Transmission Date: 20250409
  Serious: No
  Sender: ROCHE
  Company Number: US-ROCHE-10000173591

PATIENT
  Sex: Male

DRUGS (1)
  1. HEMLIBRA [Suspect]
     Active Substance: EMICIZUMAB-KXWH
     Indication: Factor VII deficiency
     Dosage: 105 MG/ 7 ML, SYRINGE 5VIL LL, BLUNT FILTER NEEDLE 18 G X 1- 1/2
     Route: 058
     Dates: start: 202303

REACTIONS (1)
  - Haemorrhage [Unknown]
